FAERS Safety Report 6695909-2 (Version None)
Quarter: 2010Q2

REPORT INFORMATION
  Report Type: 
  Country: None (occurrence: None)
  Receive Date: 20100422
  Receipt Date: 20100422
  Transmission Date: 20101027
  Serious: Yes (Other)
  Sender: FDA-Public Use
  Company Number: None

PATIENT
  Age: 50 Year
  Sex: Female
  Weight: 68.0396 kg

DRUGS (1)
  1. BUPROPION HCL [Suspect]
     Indication: DEPRESSION
     Dosage: 150 MG TWICE DAILY PO
     Route: 048
     Dates: start: 20091010, end: 20091024

REACTIONS (8)
  - AFFECTIVE DISORDER [None]
  - COGNITIVE DISORDER [None]
  - DIZZINESS [None]
  - HEADACHE [None]
  - HOT FLUSH [None]
  - PRODUCT SUBSTITUTION ISSUE [None]
  - SLEEP DISORDER [None]
  - VISUAL IMPAIRMENT [None]
